FAERS Safety Report 4337197-8 (Version None)
Quarter: 2004Q2

REPORT INFORMATION
  Report Type: 
  Country: None (occurrence: None)
  Receive Date: 20040408
  Receipt Date: 20040326
  Transmission Date: 20050107
  Serious: Yes (Life-Threatening, Hospitalization)
  Sender: FDA-Public Use
  Company Number: RENA-10880

PATIENT
  Age: 56 Year
  Sex: Female

DRUGS (7)
  1. RENAGEL [Suspect]
     Indication: HYPERPHOSPHATAEMIA
     Dosage: 1.25 G QD PO
     Route: 048
     Dates: start: 20040108, end: 20040127
  2. RENAGEL [Suspect]
     Indication: HYPERPHOSPHATAEMIA
     Dosage: 0.75 G QD PO
     Route: 048
     Dates: start: 20030704, end: 20040107
  3. EFONIDIPINE [Concomitant]
  4. SENNOSIDE [Concomitant]
  5. CALCIUM CARBONATE [Concomitant]
  6. ALFACALCIDOL [Concomitant]
  7. EPOETIN ALFA [Concomitant]

REACTIONS (2)
  - CEREBRAL HAEMORRHAGE [None]
  - DEPRESSED LEVEL OF CONSCIOUSNESS [None]
